FAERS Safety Report 10062979 (Version 1)
Quarter: 2014Q1

REPORT INFORMATION
  Report Type: Spontaneous
  Country: US (occurrence: None)
  Receive Date: 20140324
  Receipt Date: 20140324
  Transmission Date: 20141002
  Serious: Yes (Hospitalization)
  Sender: FDA-Public Use
  Company Number: AUR-APL-2013-05894

PATIENT
  Age: 86 Year
  Sex: Female
  Weight: 50.8 kg

DRUGS (6)
  1. GABAPENTIN (GABAPENTIN) [Suspect]
     Indication: NEURALGIA
     Dosage: 1 IN 1 D
     Route: 048
     Dates: start: 201306, end: 201306
  2. NORVASC (AMLODIPINE BESILATE) [Concomitant]
  3. WARFARIN (WARFARIN) [Concomitant]
  4. XANAX (ALPRAZOLAM) [Concomitant]
  5. ATENOLOL (ATENOLOL) [Concomitant]
  6. SIMVASTATIN (SIMVASTATIN) [Concomitant]

REACTIONS (2)
  - Dizziness [None]
  - Blood pressure increased [None]
